FAERS Safety Report 22526139 (Version 1)
Quarter: 2023Q2

REPORT INFORMATION
  Report Type: Spontaneous
  Country: KR (occurrence: KR)
  Receive Date: 20230606
  Receipt Date: 20230606
  Transmission Date: 20230721
  Serious: Yes (Hospitalization)
  Sender: FDA-Public Use
  Company Number: KR-ORGANON-O2306KOR000104

PATIENT
  Age: 58 Year
  Sex: Male
  Weight: 62 kg

DRUGS (7)
  1. COZAAR [Suspect]
     Active Substance: LOSARTAN POTASSIUM
     Indication: Diabetes mellitus
     Dosage: 100 MILLIGRAM, 1 DAY (QD)
     Route: 048
     Dates: start: 20190208
  2. TOSUFLOXACIN TOSILATE MONOHYDRATE [Suspect]
     Active Substance: TOSUFLOXACIN TOSILATE MONOHYDRATE
     Indication: Prostatitis
     Dosage: 150 MILLIGRAM, 0.33 DAY (Q8H)
     Route: 048
     Dates: start: 20190416, end: 20190505
  3. URSODIOL [Concomitant]
     Active Substance: URSODIOL
     Dosage: 200 MILLIGRAM,0.5 DAY( BID)
     Route: 048
  4. PITAVASTATIN CALCIUM [Concomitant]
     Active Substance: PITAVASTATIN CALCIUM
     Indication: Chronic hepatitis
     Dosage: 2 MILLIGRAM, 1DAY(QD), REPORTED AS PITAVASTATIN CALCIUM HYDRATE
     Route: 048
     Dates: start: 20100827
  5. TACROLIMUS [Concomitant]
     Active Substance: TACROLIMUS
     Indication: Liver transplant
     Dosage: 1 MILLIGRAM, 0.5 DAY(BID)
     Route: 048
     Dates: start: 20100310
  6. TAMSULOSIN HYDROCHLORIDE [Concomitant]
     Active Substance: TAMSULOSIN HYDROCHLORIDE
     Indication: Benign prostatic hyperplasia
     Dosage: 0.2 MILLIGRAM, 1DAY( QD)
     Route: 048
     Dates: start: 20171114
  7. DUTASTERIDE [Concomitant]
     Active Substance: DUTASTERIDE
     Indication: Benign prostatic hyperplasia
     Dosage: 0.5 MILLIGRAM, 1 DAY(QD)
     Route: 048
     Dates: start: 20171114

REACTIONS (1)
  - Nephrolithiasis [Recovered/Resolved]

NARRATIVE: CASE EVENT DATE: 20190429
